FAERS Safety Report 8375039-4 (Version None)
Quarter: 2012Q2

REPORT INFORMATION
  Report Type: 
  Country: None (occurrence: None)
  Receive Date: 20120521
  Receipt Date: 20120510
  Transmission Date: 20120825
  Serious: Yes (Other)
  Sender: FDA-Public Use
  Company Number: US-BAXTER-2012BAX005247

PATIENT
  Sex: Female

DRUGS (4)
  1. EXTRANEAL [Suspect]
  2. EXTRANEAL [Suspect]
     Indication: PERITONEAL DIALYSIS
     Route: 033
  3. DIANEAL LOW CALCIUM W/ DEXTROSE 1.5% [Suspect]
     Indication: PERITONEAL DIALYSIS
     Route: 033
  4. COUMADIN [Concomitant]
     Indication: CARDIAC DISORDER
     Route: 065

REACTIONS (3)
  - PERITONITIS BACTERIAL [None]
  - PERITONEAL DIALYSIS COMPLICATION [None]
  - URINARY TRACT INFECTION [None]
